FAERS Safety Report 22103467 (Version 1)
Quarter: 2023Q1

REPORT INFORMATION
  Report Type: Spontaneous
  Country: US (occurrence: None)
  Receive Date: 20230316
  Receipt Date: 20230316
  Transmission Date: 20230418
  Serious: No
  Sender: FDA-Public Use
  Company Number: None

PATIENT
  Age: 56 Year
  Sex: Female
  Weight: 54 kg

DRUGS (5)
  1. RISEDRONATE SODIUM [Suspect]
     Active Substance: RISEDRONATE SODIUM
     Indication: Osteoporosis
     Dosage: OTHER QUANTITY : 1 TABLET(S);?OTHER FREQUENCY : ONCE A MONTH;?
     Route: 048
     Dates: start: 20230314, end: 20230314
  2. Klonopin .25 1x day @night [Concomitant]
  3. VITAMIN D3 [Concomitant]
     Active Substance: CHOLECALCIFEROL
  4. VITAMIN B12 [Concomitant]
     Active Substance: CYANOCOBALAMIN
  5. Balance of Nature Fruits/Vegetable capsules [Concomitant]

REACTIONS (11)
  - Gastrooesophageal reflux disease [None]
  - Abdominal discomfort [None]
  - Pyrexia [None]
  - Pain [None]
  - Chills [None]
  - Diarrhoea [None]
  - Nausea [None]
  - Vomiting [None]
  - Dizziness [None]
  - Limb discomfort [None]
  - Asthenia [None]

NARRATIVE: CASE EVENT DATE: 20230314
